FAERS Safety Report 5557038-0 (Version None)
Quarter: 2007Q4

REPORT INFORMATION
  Report Type: 
  Country: None (occurrence: None)
  Receive Date: 20071214
  Receipt Date: 20070920
  Transmission Date: 20080405
  Serious: No
  Sender: FDA-Public Use
  Company Number: US-AMGEN-KDL244181

PATIENT
  Sex: Male

DRUGS (3)
  1. ENBREL [Suspect]
     Indication: PSORIATIC ARTHROPATHY
     Route: 058
     Dates: start: 20040101
  2. BUSPIRONE HCL [Concomitant]
  3. UNSPECIFIED ANTIANXIETY AGENT [Concomitant]

REACTIONS (2)
  - INFECTION [None]
  - NASOPHARYNGITIS [None]
